FAERS Safety Report 9559735 (Version 1)
Quarter: 2013Q3

REPORT INFORMATION
  Report Type: Spontaneous
  Country: US (occurrence: US)
  Receive Date: 20130927
  Receipt Date: 20130927
  Transmission Date: 20140515
  Serious: No
  Sender: FDA-Public Use
  Company Number: US-009507513-1309USA010864

PATIENT
  Sex: Female

DRUGS (1)
  1. ZIOPTAN [Suspect]
     Dosage: UNK
     Route: 047

REACTIONS (2)
  - Dizziness [Recovered/Resolved]
  - Urticaria [Recovered/Resolved]
